FAERS Safety Report 10514083 (Version 1)
Quarter: 2014Q4

REPORT INFORMATION
  Report Type: Spontaneous
  Country: FR (occurrence: FR)
  Receive Date: 20141013
  Receipt Date: 20141013
  Transmission Date: 20150528
  Serious: Yes (Hospitalization)
  Sender: FDA-Public Use
  Company Number: FR-PFIZER INC-2014275327

PATIENT
  Age: 90 Year
  Sex: Male

DRUGS (8)
  1. TRIVASTAL [Concomitant]
     Active Substance: PIRIBEDIL
     Dosage: UNK
  2. IBUPROFEN. [Concomitant]
     Active Substance: IBUPROFEN
     Dosage: UNK
  3. ALPRAZOLAM. [Concomitant]
     Active Substance: ALPRAZOLAM
     Dosage: UNK
  4. ZOPICLONE [Concomitant]
     Active Substance: ZOPICLONE
     Dosage: UNK
  5. EFFEXOR LP [Suspect]
     Active Substance: VENLAFAXINE HYDROCHLORIDE
     Dosage: UNK
     Route: 048
     Dates: start: 20140918, end: 20140921
  6. MARSILID [Suspect]
     Active Substance: IPRONIAZID
     Dosage: 1.5 DF PER DAY
     Route: 048
     Dates: start: 2013, end: 20140917
  7. OMEPRAZOLE. [Concomitant]
     Active Substance: OMEPRAZOLE
     Dosage: UNK
  8. BIPRETERAX [Concomitant]
     Active Substance: INDAPAMIDE\PERINDOPRIL
     Dosage: UNK

REACTIONS (5)
  - Confusional state [Not Recovered/Not Resolved]
  - Agitation [Not Recovered/Not Resolved]
  - Fall [Unknown]
  - Head injury [Unknown]
  - Cerebral haemorrhage [Not Recovered/Not Resolved]

NARRATIVE: CASE EVENT DATE: 20140921
